FAERS Safety Report 5597567-7 (Version None)
Quarter: 2008Q1

REPORT INFORMATION
  Report Type: 
  Country: None (occurrence: None)
  Receive Date: 20080121
  Receipt Date: 20080114
  Transmission Date: 20080703
  Serious: Yes (Hospitalization)
  Sender: FDA-Public Use
  Company Number: A0700614A

PATIENT
  Age: 80 Year
  Sex: Female

DRUGS (12)
  1. FLOLAN [Suspect]
     Dosage: 8NGKM UNKNOWN
     Dates: start: 20070914
  2. DIPHENOXYLATE [Concomitant]
     Dosage: 2.5MG AS REQUIRED
     Route: 048
  3. PROMETHAZINE [Concomitant]
     Dosage: 25MG AS REQUIRED
  4. OXYGEN [Concomitant]
     Dosage: 2L CONTINUOUS
     Route: 045
  5. EVISTA [Concomitant]
     Dosage: 60MG PER DAY
     Route: 048
  6. LASIX [Concomitant]
     Dosage: 40MG PER DAY
     Route: 048
  7. REVATIO [Concomitant]
     Dosage: 20MG THREE TIMES PER DAY
     Route: 048
  8. KLOR-CON [Concomitant]
     Dosage: 40MEQ PER DAY
     Route: 048
  9. ASPIRIN [Concomitant]
     Dosage: 81MG PER DAY
     Route: 048
  10. TRACLEER [Concomitant]
     Dosage: 125MG TWICE PER DAY
     Route: 048
  11. HEPARIN [Concomitant]
     Route: 042
  12. SODIUM CHLORIDE INJ [Concomitant]
     Route: 042

REACTIONS (2)
  - EXTRADURAL HAEMATOMA [None]
  - TRANSIENT ISCHAEMIC ATTACK [None]
